FAERS Safety Report 22263311 (Version 1)
Quarter: 2023Q2

REPORT INFORMATION
  Report Type: Report from Study
  Country: ZA (occurrence: ZA)
  Receive Date: 20230428
  Receipt Date: 20230428
  Transmission Date: 20230722
  Serious: Yes (Hospitalization)
  Sender: FDA-Public Use
  Company Number: ZA-AstraZeneca-2023A092655

PATIENT
  Sex: Female
  Weight: 7.7 kg

DRUGS (1)
  1. SYNAGIS [Suspect]
     Active Substance: PALIVIZUMAB
     Indication: Pneumovirus test positive
     Dosage: 15 MG/KG MONTHLY
     Route: 030

REACTIONS (1)
  - Illness [Unknown]
